FAERS Safety Report 4620326-6 (Version None)
Quarter: 2005Q1

REPORT INFORMATION
  Report Type: 
  Country: None (occurrence: None)
  Receive Date: 20050324
  Receipt Date: 20050316
  Transmission Date: 20050727
  Serious: Yes (Hospitalization)
  Sender: FDA-Public Use
  Company Number: 163-20785-05030432

PATIENT
  Age: 61 Year
  Sex: Female

DRUGS (1)
  1. THALOMID [Suspect]
     Indication: MULTIPLE MYELOMA
     Dosage: 100 MG, QD, ORAL
     Route: 048
     Dates: start: 20050201, end: 20050307

REACTIONS (4)
  - CONDITION AGGRAVATED [None]
  - DECUBITUS ULCER [None]
  - DISEASE RECURRENCE [None]
  - HYPERKALAEMIA [None]
